FAERS Safety Report 5148015-2 (Version None)
Quarter: 2006Q4

REPORT INFORMATION
  Report Type: 
  Country: None (occurrence: None)
  Receive Date: 20061110
  Receipt Date: 20061108
  Transmission Date: 20070319
  Serious: Yes (Hospitalization)
  Sender: FDA-Public Use
  Company Number: US-GLAXOSMITHKLINE-A0626785A

PATIENT
  Sex: Female

DRUGS (7)
  1. FLOVENT [Suspect]
     Indication: ASTHMA
     Dosage: 2PUFF TWICE PER DAY
     Route: 055
  2. FLONASE [Suspect]
     Indication: DRUG USE FOR UNKNOWN INDICATION
     Dosage: 4SPR PER DAY
     Route: 045
  3. SPIRIVA [Concomitant]
  4. DOXYCYCLINE [Concomitant]
  5. PREDNISONE TAB [Concomitant]
  6. BUMEX [Concomitant]
  7. CARDIZEM [Concomitant]

REACTIONS (4)
  - ASPERGILLOSIS [None]
  - DYSPNOEA [None]
  - NASAL CONGESTION [None]
  - STAPHYLOCOCCAL INFECTION [None]
